FAERS Safety Report 23763568 (Version 2)
Quarter: 2025Q1

REPORT INFORMATION
  Report Type: Spontaneous
  Country: PL (occurrence: PL)
  Receive Date: 20240419
  Receipt Date: 20250319
  Transmission Date: 20250408
  Serious: Yes (Other)
  Sender: MYLAN
  Company Number: PL-ASTELLAS-2024EU002949

PATIENT
  Age: 66 Year
  Sex: Female

DRUGS (9)
  1. TACROLIMUS [Suspect]
     Active Substance: TACROLIMUS
     Indication: Graft versus host disease
  2. BUDESONIDE [Suspect]
     Active Substance: BUDESONIDE
     Indication: Graft versus host disease
  3. RUXOLITINIB [Suspect]
     Active Substance: RUXOLITINIB
     Indication: Graft versus host disease
  4. RUXOLITINIB [Suspect]
     Active Substance: RUXOLITINIB
  5. METHYLPREDNISOLONE [Suspect]
     Active Substance: METHYLPREDNISOLONE
     Indication: Graft versus host disease
  6. CYCLOSPORINE [Concomitant]
     Active Substance: CYCLOSPORINE
     Indication: Product used for unknown indication
  7. RIFAXIMIN [Concomitant]
     Active Substance: RIFAXIMIN
     Indication: Faecal calprotectin
  8. AZITHROMYCIN [Concomitant]
     Active Substance: AZITHROMYCIN
     Indication: Faecal calprotectin
  9. METHOTREXATE [Concomitant]
     Active Substance: METHOTREXATE
     Indication: Product used for unknown indication

REACTIONS (14)
  - Pneumatosis intestinalis [Unknown]
  - Hypogammaglobulinaemia [Unknown]
  - Myopathy [Unknown]
  - Type 2 diabetes mellitus [Unknown]
  - Cardiac failure [Unknown]
  - Cytomegalovirus infection [Unknown]
  - Epstein-Barr virus infection reactivation [Unknown]
  - Hypoalbuminaemia [Unknown]
  - Haemorrhagic diathesis [Unknown]
  - Cognitive disorder [Unknown]
  - Platelet count abnormal [Unknown]
  - Asthenia [Unknown]
  - Hypoproteinaemia [Unknown]
  - Off label use [Unknown]
